FAERS Safety Report 10368322 (Version 1)
Quarter: 2014Q1

REPORT INFORMATION
  Report Type: Spontaneous
  Country: US (occurrence: None)
  Receive Date: 20140306
  Receipt Date: 20140306
  Transmission Date: 20141002
  Serious: Yes (Hospitalization, Other)
  Sender: FDA-Public Use
  Company Number: 163-21880-13023172

PATIENT
  Age: 71 Year
  Sex: Female
  Weight: 49.9 kg

DRUGS (7)
  1. REVLIMID [Suspect]
     Indication: PLASMA CELL MYELOMA
     Route: 048
     Dates: start: 20120511
  2. AMITRIPTYLINE HCL (AMITRIPTYLINE) [Concomitant]
  3. ACYCLOVIR (ACICLOVIR) (ACICLOVIR) [Concomitant]
  4. MAGNESIUM GLUCONATE (MAGESIUM GLUCONATE) [Concomitant]
  5. PERCOCET (OXYCOCET) [Concomitant]
  6. POTASSIUM BICARBONATE (POTASSIUM BICARBONATE) [Concomitant]
  7. VITAMIN B-50 COMPLEX (VITAMIN B-COMPLEX) [Concomitant]

REACTIONS (1)
  - Confusional state [None]
